FAERS Safety Report 13570918 (Version 1)
Quarter: 2017Q2

REPORT INFORMATION
  Report Type: Spontaneous
  Country: US (occurrence: US)
  Receive Date: 20170522
  Receipt Date: 20170522
  Transmission Date: 20170830
  Serious: Yes (Other)
  Sender: FDA-Public Use
  Company Number: None

PATIENT
  Age: 65 Year
  Sex: Male
  Weight: 67.5 kg

DRUGS (7)
  1. VITAMIN D [Concomitant]
     Active Substance: CHOLECALCIFEROL
  2. PHYTOSTEROL COMPLEX [Concomitant]
  3. K1 CALCIUM [Concomitant]
  4. GLUCOSAMINE/CHONDROITIN /08437701/ [Concomitant]
     Active Substance: CHONDROITIN SULFATE (BOVINE)\GLUCOSAMINE SULFATE
  5. ALFUZOSIN 10MG [Suspect]
     Active Substance: ALFUZOSIN
     Indication: BENIGN PROSTATIC HYPERPLASIA
     Dosage: ?          QUANTITY:90 TABLET(S);?
     Route: 048
     Dates: start: 20170418, end: 20170424
  6. VITAMIN C [Concomitant]
     Active Substance: ASCORBIC ACID
  7. PYGEUM [Concomitant]
     Active Substance: PYGEUM

REACTIONS (1)
  - Peyronie^s disease [None]

NARRATIVE: CASE EVENT DATE: 20170425
